FAERS Safety Report 7424095-6 (Version None)
Quarter: 2011Q2

REPORT INFORMATION
  Report Type: 
  Country: None (occurrence: None)
  Receive Date: 20110419
  Receipt Date: 20110411
  Transmission Date: 20111010
  Serious: Yes (Other)
  Sender: FDA-Public Use
  Company Number: PHHY2011IT31817

PATIENT
  Age: 80 Year
  Sex: Female

DRUGS (3)
  1. WARFARIN [Interacting]
     Dosage: 32.5 MG, QW
  2. BILBERRY [Interacting]
     Dosage: 200 ML, QD
  3. WARFARIN [Suspect]
     Dosage: 27.5 MG, QW

REACTIONS (3)
  - INTERNATIONAL NORMALISED RATIO ABNORMAL [None]
  - THERAPEUTIC RESPONSE DECREASED [None]
  - DRUG INTERACTION [None]
